FAERS Safety Report 18548628 (Version 1)
Quarter: 2020Q4

REPORT INFORMATION
  Report Type: Other
  Country: CA (occurrence: CA)
  Receive Date: 20201126
  Receipt Date: 20201126
  Transmission Date: 20210114
  Serious: Yes (Other)
  Sender: FDA-Public Use
  Company Number: CA-CELLTRION INC.-2020CA032183

PATIENT

DRUGS (6)
  1. LEUCOVORIN CALCIUM. [Concomitant]
     Active Substance: LEUCOVORIN CALCIUM
  2. RITUXIMAB (UNKNOWN) [Suspect]
     Active Substance: RITUXIMAB
     Indication: RHEUMATOID ARTHRITIS
     Dosage: 1000.0 MILLIGRAM
     Route: 041
  3. ESOMEPRAZOLE. [Concomitant]
     Active Substance: ESOMEPRAZOLE MAGNESIUM
  4. METHOTREXATE. [Suspect]
     Active Substance: METHOTREXATE
     Indication: RHEUMATOID ARTHRITIS
     Dosage: 15.0 MILLIGRAM, 1 EVERY 1 WEEK
     Route: 058
  5. TYLENOL [Suspect]
     Active Substance: ACETAMINOPHEN
     Indication: PAIN
     Route: 065
  6. CELEBREX [Suspect]
     Active Substance: CELECOXIB
     Indication: PAIN
     Dosage: 200.0 MILLIGRAM
     Route: 048

REACTIONS (12)
  - Dry mouth [Recovered/Resolved]
  - Ovarian cystectomy [Recovered/Resolved]
  - Rash [Recovered/Resolved]
  - Apnoea [Recovered/Resolved]
  - Anxiety [Recovered/Resolved]
  - Dry eye [Recovered/Resolved]
  - Uterine leiomyoma [Recovered/Resolved]
  - Weight fluctuation [Recovered/Resolved]
  - Gastrointestinal disorder [Recovered/Resolved]
  - Eczema [Recovered/Resolved]
  - Vitamin D decreased [Recovered/Resolved]
  - Nausea [Recovered/Resolved]
